FAERS Safety Report 5082018-1 (Version None)
Quarter: 2006Q3

REPORT INFORMATION
  Report Type: 
  Country: None (occurrence: None)
  Receive Date: 20060817
  Receipt Date: 20060607
  Transmission Date: 20061208
  Serious: Yes (Other)
  Sender: FDA-Public Use
  Company Number: PHEH2006US07542

PATIENT
  Age: 82 Year
  Sex: Female

DRUGS (8)
  1. EVISTA [Suspect]
     Indication: OSTEOPOROSIS
     Dosage: UNK, QD
     Route: 048
     Dates: end: 20060607
  2. ZETIA [Concomitant]
     Indication: BLOOD CHOLESTEROL
     Dates: start: 20020101
  3. THYROID TAB [Concomitant]
     Indication: HYPOTHYROIDISM
  4. TIOTROPIUM BROMIDE [Concomitant]
     Indication: DYSPNOEA
  5. CALTRATE [Concomitant]
  6. CALCIUM CITRATE [Concomitant]
  7. MIACALCIN [Suspect]
     Indication: OSTEOPOROSIS
     Dosage: UNK, QD
     Dates: start: 20010101
  8. LIPITOR /NET/ [Suspect]

REACTIONS (2)
  - LUPUS-LIKE SYNDROME [None]
  - STRESS FRACTURE [None]
